FAERS Safety Report 14605838 (Version 2)
Quarter: 2018Q3

REPORT INFORMATION
  Report Type: Spontaneous
  Country: US (occurrence: US)
  Receive Date: 20180306
  Receipt Date: 20180713
  Transmission Date: 20181010
  Serious: No
  Sender: FDA-Public Use
  Company Number: US-INTERCEPT-PMOCA2018000100

PATIENT

DRUGS (2)
  1. OCALIVA [Suspect]
     Active Substance: OBETICHOLIC ACID
     Indication: PRIMARY BILIARY CHOLANGITIS
     Dosage: 5 MG, QD
     Route: 048
     Dates: start: 2017
  2. URSODIOL. [Concomitant]
     Active Substance: URSODIOL

REACTIONS (7)
  - Autoimmune disorder [Unknown]
  - Insomnia [Recovering/Resolving]
  - Alopecia [Unknown]
  - Nasopharyngitis [Unknown]
  - Drug dose omission [Unknown]
  - Fatigue [Unknown]
  - Pruritus [Recovering/Resolving]

NARRATIVE: CASE EVENT DATE: 201802
